FAERS Safety Report 15987776 (Version 2)
Quarter: 2019Q2

REPORT INFORMATION
  Report Type: Spontaneous
  Country: US (occurrence: US)
  Receive Date: 20190220
  Receipt Date: 20190508
  Transmission Date: 20190711
  Serious: No
  Sender: FDA-Public Use
  Company Number: US-PFIZER INC-2018494552

PATIENT
  Age: 65 Year
  Sex: Male
  Weight: 115 kg

DRUGS (1)
  1. SUTENT [Suspect]
     Active Substance: SUNITINIB MALATE
     Indication: THYMOMA
     Dosage: 37.5 MG, DAILY 2 WEEKS ON 1 WEEK
     Route: 048

REACTIONS (4)
  - Off label use [Unknown]
  - Rash [Recovered/Resolved]
  - Weight increased [Unknown]
  - Product use in unapproved indication [Unknown]

NARRATIVE: CASE EVENT DATE: 2018
